FAERS Safety Report 9166506 (Version 1)
Quarter: 2013Q1

REPORT INFORMATION
  Report Type: Spontaneous
  Country: US (occurrence: US)
  Receive Date: 20130315
  Receipt Date: 20130315
  Transmission Date: 20140127
  Serious: Yes (Hospitalization)
  Sender: FDA-Public Use
  Company Number: US-SHIONOGI, INC-2013000141

PATIENT
  Age: 82 Year
  Sex: Female

DRUGS (2)
  1. TRAMADOL [Suspect]
     Indication: PAIN
     Dosage: UNK
  2. METOCLOPRAMIDE HYDROCHLORIDE [Suspect]
     Indication: NUTRITIONAL SUPPLEMENTATION
     Dosage: UNK

REACTIONS (4)
  - Pneumonia [Unknown]
  - Peripheral ischaemia [Unknown]
  - Pyrexia [Unknown]
  - Somnolence [Unknown]
